FAERS Safety Report 9290498 (Version 1)
Quarter: 2013Q2

REPORT INFORMATION
  Report Type: Spontaneous
  Country: US (occurrence: None)
  Receive Date: 20130514
  Receipt Date: 20130514
  Transmission Date: 20140414
  Serious: Yes (Hospitalization, Disabling)
  Sender: FDA-Public Use
  Company Number: None

PATIENT
  Age: 26 Year
  Sex: Male
  Weight: 44.1 kg

DRUGS (3)
  1. CIPROFLOXACIN [Suspect]
     Indication: CYSTIC FIBROSIS
     Route: 042
     Dates: start: 20110502, end: 20110510
  2. AZTREONAM IV AND COLISTIN IH [Concomitant]
  3. VITAMINS [Concomitant]

REACTIONS (1)
  - Pain in extremity [None]
